FAERS Safety Report 12202188 (Version 4)
Quarter: 2016Q4

REPORT INFORMATION
  Report Type: Spontaneous
  Country: US (occurrence: US)
  Receive Date: 20160322
  Receipt Date: 20161120
  Transmission Date: 20170207
  Serious: Yes (Other)
  Sender: FDA-Public Use
  Company Number: PHEH2016US006871

PATIENT
  Sex: Male

DRUGS (1)
  1. GILENYA [Suspect]
     Active Substance: FINGOLIMOD HYDROCHLORIDE
     Indication: PRODUCT USED FOR UNKNOWN INDICATION
     Route: 065

REACTIONS (11)
  - JC virus test positive [Unknown]
  - Liver function test abnormal [Unknown]
  - Decreased vibratory sense [Unknown]
  - Dyslipidaemia [Unknown]
  - Limb discomfort [Unknown]
  - Muscle tightness [Unknown]
  - Chronic lymphocytic leukaemia (in remission) [Unknown]
  - Memory impairment [Unknown]
  - Mood altered [Unknown]
  - Fatigue [Unknown]
  - Drug ineffective [Unknown]
